FAERS Safety Report 20214280 (Version 6)
Quarter: 2025Q2

REPORT INFORMATION
  Report Type: Spontaneous
  Country: US (occurrence: US)
  Receive Date: 20211221
  Receipt Date: 20250402
  Transmission Date: 20250716
  Serious: Yes (Other)
  Sender: PFIZER
  Company Number: US-PFIZER INC-202101641258

PATIENT
  Age: 73 Year
  Sex: Female

DRUGS (2)
  1. XELJANZ XR [Suspect]
     Active Substance: TOFACITINIB CITRATE
     Dosage: 11 MG, DAILY
  2. PANTOPRAZOLE [Concomitant]
     Active Substance: PANTOPRAZOLE

REACTIONS (8)
  - Hip arthroplasty [Unknown]
  - COVID-19 [Unknown]
  - Illness [Unknown]
  - Fatigue [Unknown]
  - Dysphonia [Unknown]
  - Ulcer [Unknown]
  - Blood pressure abnormal [Unknown]
  - Brain fog [Unknown]

NARRATIVE: CASE EVENT DATE: 20221205
